FAERS Safety Report 12977061 (Version 1)
Quarter: 2016Q4

REPORT INFORMATION
  Report Type: Other
  Country: DE (occurrence: DE)
  Receive Date: 20161128
  Receipt Date: 20161128
  Transmission Date: 20170207
  Serious: No
  Sender: FDA-Public Use
  Company Number: DE-LUPIN PHARMACEUTICALS INC.-E2B_00006146

PATIENT
  Sex: Male
  Weight: 103 kg

DRUGS (5)
  1. ATORVASTATIN [Suspect]
     Active Substance: ATORVASTATIN
     Indication: HYPERCHOLESTEROLAEMIA
     Route: 048
     Dates: start: 20160218, end: 20160223
  2. PRAVASTATIN. [Suspect]
     Active Substance: PRAVASTATIN
     Indication: HYPERCHOLESTEROLAEMIA
     Route: 048
     Dates: start: 20160223, end: 20160406
  3. FENOFIBRATE. [Suspect]
     Active Substance: FENOFIBRATE
     Indication: HYPERCHOLESTEROLAEMIA
     Route: 048
     Dates: start: 20160614, end: 20160810
  4. SIMVASTATIN. [Suspect]
     Active Substance: SIMVASTATIN
     Indication: HYPERCHOLESTEROLAEMIA
     Route: 048
  5. OMEGA-3 ACIDS [Concomitant]
     Active Substance: OMEGA-3 FATTY ACIDS
     Indication: PRODUCT USED FOR UNKNOWN INDICATION
     Route: 065
     Dates: start: 20150921, end: 20160614

REACTIONS (5)
  - Arthralgia [Recovered/Resolved]
  - Petechiae [Recovered/Resolved]
  - Gout [Recovered/Resolved]
  - Tendon injury [Recovered/Resolved]
  - Skin exfoliation [Recovered/Resolved]
